FAERS Safety Report 6644441-0 (Version None)
Quarter: 2010Q1

REPORT INFORMATION
  Report Type: 
  Country: None (occurrence: None)
  Receive Date: 20100322
  Receipt Date: 20100310
  Transmission Date: 20100710
  Serious: Yes (Other)
  Sender: FDA-Public Use
  Company Number: JP-ROCHE-691798

PATIENT
  Age: 67 Year
  Sex: Female

DRUGS (4)
  1. VESANOID [Suspect]
     Indication: ACUTE PROMYELOCYTIC LEUKAEMIA
     Route: 048
     Dates: start: 20071201
  2. VESANOID [Suspect]
     Route: 048
     Dates: start: 20080101
  3. IDARUBICIN HYDROCHLORIDE [Concomitant]
     Route: 042
     Dates: start: 20071201
  4. CYTARABINE [Concomitant]
     Route: 042
     Dates: start: 20071201

REACTIONS (4)
  - CARDIAC FAILURE [None]
  - LIP DRY [None]
  - LIP ULCERATION [None]
  - PHARYNGITIS [None]
